FAERS Safety Report 7564199-0 (Version None)
Quarter: 2011Q2

REPORT INFORMATION
  Report Type: 
  Country: None (occurrence: None)
  Receive Date: 20110622
  Receipt Date: 20110608
  Transmission Date: 20111010
  Serious: Yes (Other)
  Sender: FDA-Public Use
  Company Number: PHFR2011GB02617

PATIENT
  Sex: Female

DRUGS (3)
  1. CLOZAPINE [Suspect]
     Dosage: 100 MG DAILY
  2. HYOSCINE [Concomitant]
     Dosage: 300 UG, DAILY
     Route: 048
  3. CLOZAPINE [Suspect]
     Indication: SCHIZOPHRENIA
     Dosage: 400 MG, BID
     Route: 048
     Dates: start: 19901127

REACTIONS (5)
  - MUSCLE TWITCHING [None]
  - DISORIENTATION [None]
  - CONFUSIONAL STATE [None]
  - BURNING SENSATION [None]
  - ANTIPSYCHOTIC DRUG LEVEL INCREASED [None]
